FAERS Safety Report 6796754-X (Version None)
Quarter: 2010Q2

REPORT INFORMATION
  Report Type: 
  Country: None (occurrence: None)
  Receive Date: 20100622
  Receipt Date: 20100607
  Transmission Date: 20101027
  Serious: Yes (Life-Threatening, Hospitalization)
  Sender: FDA-Public Use
  Company Number: AMAG201000259

PATIENT
  Age: 81 Year
  Sex: Male
  Weight: 90.7 kg

DRUGS (2)
  1. FERAHEME [Suspect]
     Indication: IRON DEFICIENCY ANAEMIA
     Dosage: 510 MG. SINGLE OVER 20 SECONDS, INTRAVENOUS
     Route: 042
     Dates: start: 20100607, end: 20100607
  2. FERAHEME [Suspect]
     Indication: RENAL FAILURE CHRONIC
     Dosage: 510 MG. SINGLE OVER 20 SECONDS, INTRAVENOUS
     Route: 042
     Dates: start: 20100607, end: 20100607

REACTIONS (6)
  - CARDIAC FAILURE CONGESTIVE [None]
  - DIZZINESS [None]
  - DYSPNOEA [None]
  - INFUSION SITE EXTRAVASATION [None]
  - LOSS OF CONSCIOUSNESS [None]
  - PULSE ABSENT [None]
